FAERS Safety Report 6434293-6 (Version None)
Quarter: 2009Q4

REPORT INFORMATION
  Report Type: 
  Country: None (occurrence: None)
  Receive Date: 20091109
  Receipt Date: 20091109
  Transmission Date: 20100525
  Serious: Yes (Life-Threatening, Other)
  Sender: FDA-Public Use
  Company Number: None

PATIENT
  Age: 52 Year
  Sex: Female
  Weight: 135.1719 kg

DRUGS (2)
  1. METFORMIN HCL [Suspect]
     Indication: DIABETES MELLITUS
     Dosage: 3 TIMES DAY 850 MG.
     Dates: start: 20090616, end: 20091005
  2. AMLODIPINE [Suspect]
     Indication: HYPERTENSION
     Dosage: 1 TIME A DAY 10 MG.
     Dates: start: 20090616, end: 20091005

REACTIONS (8)
  - BLOOD GLUCOSE INCREASED [None]
  - DRUG INEFFECTIVE [None]
  - FEELING ABNORMAL [None]
  - HEADACHE [None]
  - LOCAL SWELLING [None]
  - PRODUCT SUBSTITUTION ISSUE [None]
  - UNEVALUABLE EVENT [None]
  - VISUAL IMPAIRMENT [None]
